FAERS Safety Report 20871104 (Version 1)
Quarter: 2022Q2

REPORT INFORMATION
  Report Type: Spontaneous
  Country: IR (occurrence: IR)
  Receive Date: 20220525
  Receipt Date: 20220525
  Transmission Date: 20220721
  Serious: Yes (Death)
  Sender: FDA-Public Use
  Company Number: IR-NOVAST LABORATORIES INC.-2022NOV000264

PATIENT
  Age: 60 Year
  Sex: Female

DRUGS (3)
  1. AMPHETAMINE SULFATE [Suspect]
     Active Substance: AMPHETAMINE SULFATE
     Indication: Product used for unknown indication
     Dosage: UNK
     Route: 065
  2. BENZODIAZEPINE [Suspect]
     Active Substance: BENZODIAZEPINE
     Indication: Product used for unknown indication
     Dosage: UNK
     Route: 065
  3. ALPRAZOLAM [Suspect]
     Active Substance: ALPRAZOLAM
     Indication: Product used for unknown indication
     Dosage: UNK
     Route: 065

REACTIONS (10)
  - Gastrointestinal perforation [Fatal]
  - Renal failure [Fatal]
  - Disseminated intravascular coagulation [Fatal]
  - Peritonitis [Fatal]
  - Cholecystitis [Fatal]
  - Metabolic encephalopathy [Fatal]
  - Sepsis [Fatal]
  - Suspected suicide [Fatal]
  - Drug abuse [Fatal]
  - Cardio-respiratory arrest [Fatal]
